FAERS Safety Report 8289099-2 (Version None)
Quarter: 2012Q2

REPORT INFORMATION
  Report Type: 
  Country: None (occurrence: None)
  Receive Date: 20120412
  Receipt Date: 20120404
  Transmission Date: 20120825
  Serious: Yes (Hospitalization)
  Sender: FDA-Public Use
  Company Number: 120125

PATIENT
  Age: 70 Year
  Sex: Female
  Weight: 68.0396 kg

DRUGS (6)
  1. LIDODERM [Concomitant]
  2. SUPREP BOWEL PREP KIT [Suspect]
     Indication: COLONOSCOPY
     Dosage: 1 X 6 OZ BOTTLE/1X/PO
     Route: 048
     Dates: start: 20120307
  3. CLARITIN [Concomitant]
  4. SINGULAIR [Concomitant]
  5. LISINOPRIL [Concomitant]
  6. SUMATRIPTAN [Concomitant]

REACTIONS (9)
  - PRESYNCOPE [None]
  - BLOOD PRESSURE INCREASED [None]
  - HEAD INJURY [None]
  - ARRHYTHMIA [None]
  - HEADACHE [None]
  - VOMITING [None]
  - INJURY [None]
  - ASTHENIA [None]
  - LOSS OF CONSCIOUSNESS [None]
